FAERS Safety Report 17457834 (Version 1)
Quarter: 2020Q1

REPORT INFORMATION
  Report Type: Spontaneous
  Country: US (occurrence: US)
  Receive Date: 20200225
  Receipt Date: 20200225
  Transmission Date: 20200409
  Serious: Yes (Other)
  Sender: FDA-Public Use
  Company Number: US-ELI_LILLY_AND_COMPANY-US202002007656

PATIENT
  Age: 48 Year
  Sex: Female
  Weight: 57.15 kg

DRUGS (9)
  1. ZOMIG [Concomitant]
     Active Substance: ZOLMITRIPTAN
  2. EMGALITY [Suspect]
     Active Substance: GALCANEZUMAB-GNLM
     Indication: MIGRAINE PROPHYLAXIS
     Dosage: 120 MG, MONTHLY (1/M)
     Route: 058
     Dates: start: 20190414
  3. TYLENOL [Concomitant]
     Active Substance: ACETAMINOPHEN
  4. BIOTIN [Concomitant]
     Active Substance: BIOTIN
  5. VITAMIN D1 [Concomitant]
     Active Substance: VITAMIN D NOS
  6. IMITREX [Concomitant]
     Active Substance: SUMATRIPTAN SUCCINATE
  7. TROKENDI [Concomitant]
     Active Substance: TOPIRAMATE
  8. CARBATROL [Concomitant]
     Active Substance: CARBAMAZEPINE
  9. ZANTAC [Concomitant]
     Active Substance: RANITIDINE HYDROCHLORIDE

REACTIONS (1)
  - Alopecia [Unknown]

NARRATIVE: CASE EVENT DATE: 20190506
